FAERS Safety Report 8524967-5 (Version None)
Quarter: 2012Q3

REPORT INFORMATION
  Report Type: 
  Country: None (occurrence: None)
  Receive Date: 20120720
  Receipt Date: 20120713
  Transmission Date: 20120928
  Serious: Yes (Hospitalization, Disabling)
  Sender: FDA-Public Use
  Company Number: US-JNJFOC-20040705075

PATIENT
  Sex: Male
  Weight: 18.51 kg

DRUGS (5)
  1. CHILDREN'S MOTRIN [Suspect]
     Indication: COUGH
     Dates: start: 20030227
  2. EYE DROPS [Concomitant]
  3. CHILDREN'S MOTRIN [Suspect]
     Indication: PYREXIA
     Dates: start: 20030227
  4. COUGH SYRUP [Concomitant]
  5. ZITHROMAX [Concomitant]

REACTIONS (2)
  - STEVENS-JOHNSON SYNDROME [None]
  - OBLITERATIVE BRONCHIOLITIS [None]
